FAERS Safety Report 7896890-0 (Version None)
Quarter: 2011Q4

REPORT INFORMATION
  Report Type: 
  Country: None (occurrence: None)
  Receive Date: 20111107
  Receipt Date: 20110505
  Transmission Date: 20120403
  Serious: No
  Sender: FDA-Public Use
  Company Number: US-BAYER-2011-041042

PATIENT
  Age: 72 Year
  Sex: Female
  Weight: 91 kg

DRUGS (3)
  1. GABAPENTIN [Concomitant]
  2. ASPIRIN [Suspect]
     Indication: ANALGESIC THERAPY
     Dosage: 2 U, QD
     Route: 048
  3. ALEVE (CAPLET) [Suspect]
     Indication: ANALGESIC THERAPY
     Dosage: 2 U, QD
     Route: 048

REACTIONS (1)
  - MEDICATION ERROR [None]
